FAERS Safety Report 20697293 (Version 1)
Quarter: 2022Q2

REPORT INFORMATION
  Report Type: Spontaneous
  Country: US (occurrence: None)
  Receive Date: 20220408
  Receipt Date: 20220408
  Transmission Date: 20220721
  Serious: Yes (Hospitalization)
  Sender: FDA-Public Use
  Company Number: None

PATIENT
  Sex: Female
  Weight: 68.95 kg

DRUGS (8)
  1. SPRYCEL [Suspect]
     Active Substance: DASATINIB
     Indication: Breast cancer female
     Dosage: 50MG DAILY ORAL
     Route: 048
     Dates: start: 202108
  2. ACYCLOVIR [Concomitant]
     Active Substance: ACYCLOVIR
  3. AMIODARONE HCI [Concomitant]
  4. ATIVAN [Concomitant]
     Active Substance: LORAZEPAM
  5. CRESTOR [Concomitant]
     Active Substance: ROSUVASTATIN CALCIUM
  6. GLEEVEC [Concomitant]
     Active Substance: IMATINIB MESYLATE
  7. LOSARTAN POTASSIUM [Concomitant]
     Active Substance: LOSARTAN POTASSIUM
  8. VORICONAZOLE [Concomitant]
     Active Substance: VORICONAZOLE

REACTIONS (2)
  - Sepsis [None]
  - COVID-19 [None]
